FAERS Safety Report 10233529 (Version 1)
Quarter: 2014Q2

REPORT INFORMATION
  Report Type: Spontaneous
  Country: US (occurrence: None)
  Receive Date: 20140611
  Receipt Date: 20140611
  Transmission Date: 20141212
  Serious: Yes (Hospitalization)
  Sender: FDA-Public Use
  Company Number: None

PATIENT
  Age: 26 Day
  Sex: Female
  Weight: 10.6 kg

DRUGS (3)
  1. GLEEVAC [Suspect]
     Indication: NEUROFIBROMA
     Dosage: 50 MG ?ONCE DAILY?ORAL/G-TUBE
     Route: 048
     Dates: start: 20140604, end: 20140608
  2. MULTI VITAMIN [Concomitant]
  3. ONDANSETRON [Concomitant]

REACTIONS (5)
  - Vomiting [None]
  - Diarrhoea [None]
  - Pyrexia [None]
  - Dehydration [None]
  - Sepsis [None]
